FAERS Safety Report 4886860-9 (Version None)
Quarter: 2006Q1

REPORT INFORMATION
  Report Type: 
  Country: None (occurrence: None)
  Receive Date: 20060119
  Receipt Date: 20060106
  Transmission Date: 20060701
  Serious: Yes (Other)
  Sender: FDA-Public Use
  Company Number: 2006005553

PATIENT
  Sex: Female

DRUGS (1)
  1. DEPO-PROVERA [Suspect]
     Indication: ILL-DEFINED DISORDER
     Dosage: (1ST INJECTION), INTRAMUSCULAR
     Route: 030
     Dates: start: 20000101, end: 20000101

REACTIONS (1)
  - BENIGN INTRACRANIAL HYPERTENSION [None]
